FAERS Safety Report 15395651 (Version 1)
Quarter: 2018Q3

REPORT INFORMATION
  Report Type: Report from Study
  Country: FR (occurrence: FR)
  Receive Date: 20180918
  Receipt Date: 20180918
  Transmission Date: 20181010
  Serious: Yes (Hospitalization, Other)
  Sender: FDA-Public Use
  Company Number: FR-JNJFOC-20180844078

PATIENT
  Age: 51 Year
  Sex: Female
  Weight: 56 kg

DRUGS (16)
  1. HUMIRA [Concomitant]
     Active Substance: ADALIMUMAB
     Route: 058
     Dates: start: 20170612
  2. COSENTYX [Concomitant]
     Active Substance: SECUKINUMAB
     Route: 058
     Dates: start: 20160808
  3. METHOTREXATE. [Concomitant]
     Active Substance: METHOTREXATE
     Route: 048
     Dates: start: 20161003
  4. ACIDE FOLIQUE [Concomitant]
     Active Substance: FOLIC ACID
     Route: 065
     Dates: start: 20161205
  5. AGOMELATINE [Concomitant]
     Active Substance: AGOMELATINE
     Route: 065
     Dates: start: 20150619
  6. TALTZ [Concomitant]
     Active Substance: IXEKIZUMAB
     Route: 058
     Dates: start: 20170410
  7. CLOBETASOL PROPIONATE. [Concomitant]
     Active Substance: CLOBETASOL PROPIONATE
     Route: 065
     Dates: start: 20161003
  8. TOCTINO [Concomitant]
     Active Substance: ALITRETINOIN
     Route: 065
     Dates: start: 20170814
  9. CLARELUX [Concomitant]
     Active Substance: CLOBETASOL PROPIONATE
     Route: 065
     Dates: start: 20170814
  10. OTEZLA [Concomitant]
     Active Substance: APREMILAST
     Route: 065
     Dates: start: 20170109
  11. REMICADE [Concomitant]
     Active Substance: INFLIXIMAB
     Route: 042
     Dates: start: 20160517
  12. TALTZ [Concomitant]
     Active Substance: IXEKIZUMAB
     Route: 058
     Dates: start: 20170425
  13. STELARA [Suspect]
     Active Substance: USTEKINUMAB
     Indication: PSORIASIS
     Route: 058
     Dates: start: 20151208
  14. METHOTREXATE. [Concomitant]
     Active Substance: METHOTREXATE
     Route: 048
     Dates: start: 20160517
  15. ENBREL [Concomitant]
     Active Substance: ETANERCEPT
     Route: 058
     Dates: start: 20160311
  16. ACITRETIN. [Concomitant]
     Active Substance: ACITRETIN
     Route: 065
     Dates: start: 20180529

REACTIONS (2)
  - Polyp [Recovered/Resolved with Sequelae]
  - Transitional cell carcinoma [Not Recovered/Not Resolved]

NARRATIVE: CASE EVENT DATE: 2018
